FAERS Safety Report 16993578 (Version 2)
Quarter: 2019Q4

REPORT INFORMATION
  Report Type: Report from Study
  Country: JP (occurrence: JP)
  Receive Date: 20191105
  Receipt Date: 20191126
  Transmission Date: 20200122
  Serious: Yes (Hospitalization)
  Sender: FDA-Public Use
  Company Number: JP-DSJP-DSJ-2019-141398AA

PATIENT

DRUGS (19)
  1. TIMOPTOL [Concomitant]
     Active Substance: TIMOLOL
     Dosage: 2DROPS/DAY
     Route: 047
     Dates: end: 20190526
  2. EDOXABAN [Suspect]
     Active Substance: EDOXABAN TOSYLATE
     Dosage: 60 MG, QD
     Route: 048
     Dates: start: 20190215
  3. JAKAVI [Suspect]
     Active Substance: RUXOLITINIB
     Dosage: 10MG/DAY
     Route: 048
     Dates: start: 20190315, end: 20190326
  4. AMLODIPINE                         /00972402/ [Concomitant]
     Active Substance: AMLODIPINE BESYLATE
     Dosage: 5MG/DAY
     Route: 048
     Dates: end: 20190331
  5. OLMETEC [Concomitant]
     Active Substance: OLMESARTAN MEDOXOMIL
     Dosage: 20MG/DAY
     Route: 048
     Dates: end: 20190331
  6. HYDREA [Concomitant]
     Active Substance: HYDROXYUREA
     Dosage: 1000MG/DAY
     Route: 048
     Dates: end: 20190314
  7. PLETAAL [Concomitant]
     Active Substance: CILOSTAZOL
     Dosage: 200MG/DAY
     Route: 048
     Dates: end: 20170528
  8. PARIET [Concomitant]
     Active Substance: RABEPRAZOLE SODIUM
     Dosage: 10MG/DAY
     Route: 048
  9. MAINTATE [Concomitant]
     Active Substance: BISOPROLOL FUMARATE
     Dosage: 2.5MG/DAY
     Route: 048
     Dates: start: 20170901
  10. VASOLAN                            /00014302/ [Concomitant]
     Active Substance: VERAPAMIL HYDROCHLORIDE
     Dosage: 120MG/DAY
     Route: 048
     Dates: start: 20170529
  11. FEBURIC [Concomitant]
     Active Substance: FEBUXOSTAT
     Dosage: 20MG/DAY
     Route: 048
  12. XALATAN [Concomitant]
     Active Substance: LATANOPROST
     Dosage: 2DROPS/DAY
     Route: 047
     Dates: start: 20180206, end: 20190526
  13. EDOXABAN [Suspect]
     Active Substance: EDOXABAN TOSYLATE
     Indication: ATRIAL FIBRILLATION
     Dosage: 60 MG, QD
     Route: 048
     Dates: start: 20170529, end: 20190212
  14. LUMIGAN [Concomitant]
     Active Substance: BIMATOPROST
     Dosage: 1DROP/DAY
     Route: 047
     Dates: end: 20180205
  15. IRSOGLADINE MALEATE [Concomitant]
     Active Substance: IRSOGLADINE MALEATE
     Dosage: 4MG/DAY
     Route: 048
  16. MAINTATE [Concomitant]
     Active Substance: BISOPROLOL FUMARATE
     Indication: ATRIAL FIBRILLATION
     Dosage: 0.625MG/DAY
     Route: 048
     Dates: start: 20170529, end: 20170629
  17. MAINTATE [Concomitant]
     Active Substance: BISOPROLOL FUMARATE
     Dosage: 1.25MG/DAY
     Route: 048
     Dates: start: 20170630, end: 20170831
  18. HYDREA [Concomitant]
     Active Substance: HYDROXYUREA
     Dosage: 1000MG/DAY
     Route: 048
     Dates: start: 20190401
  19. MIKELUNA [Concomitant]
     Dosage: 2DROPS/DAY
     Route: 047
     Dates: start: 20190527

REACTIONS (2)
  - Oedema peripheral [Recovering/Resolving]
  - Anaemia [Recovering/Resolving]

NARRATIVE: CASE EVENT DATE: 201812
